FAERS Safety Report 24761740 (Version 1)
Quarter: 2024Q4

REPORT INFORMATION
  Report Type: Report from Study
  Country: US (occurrence: US)
  Receive Date: 20241220
  Receipt Date: 20241220
  Transmission Date: 20250114
  Serious: Yes (Other)
  Sender: ABBVIE
  Company Number: US-ABBVIE-6050420

PATIENT
  Age: 79 Year
  Sex: Female

DRUGS (2)
  1. SKYRIZI [Suspect]
     Active Substance: RISANKIZUMAB-RZAA
     Indication: Psoriasis
     Route: 058
     Dates: start: 20230824, end: 202407
  2. SKYRIZI [Suspect]
     Active Substance: RISANKIZUMAB-RZAA
     Indication: Psoriasis

REACTIONS (5)
  - Hip fracture [Unknown]
  - Fall [Unknown]
  - Diabetes mellitus [Unknown]
  - Ulcer [Unknown]
  - Eye disorder [Unknown]

NARRATIVE: CASE EVENT DATE: 20241001
